FAERS Safety Report 20255509 (Version 1)
Quarter: 2021Q4

REPORT INFORMATION
  Report Type: Spontaneous
  Country: DE (occurrence: DE)
  Receive Date: 20211230
  Receipt Date: 20211230
  Transmission Date: 20220304
  Serious: Yes (Hospitalization)
  Sender: FDA-Public Use
  Company Number: DE-ADRED-05815-04

PATIENT
  Age: 69 Year
  Sex: Male

DRUGS (7)
  1. GEMCITABINE [Suspect]
     Active Substance: GEMCITABINE
     Dosage: ACCORDING TO THE SCHEME
     Route: 065
  2. PANTOPRAZOLE SODIUM [Concomitant]
     Active Substance: PANTOPRAZOLE SODIUM
     Dosage: 40 MILLIGRAM DAILY; 1-0-0-0, SUSTAINED-RELEASE TABLETS
     Route: 048
  3. INSULIN ASPART [Concomitant]
     Active Substance: INSULIN ASPART
     Dosage: 1 IU, 6-3-3-0, SOLUTION FOR INJECTION / INFUSION
     Route: 058
  4. TINZAPARIN [Concomitant]
     Active Substance: TINZAPARIN
     Dosage: 10000 IU (INTERNATIONAL UNIT) DAILY; 0-0-1-0, PRE-FILLED SYRINGES
     Route: 058
  5. INSULIN GLARGINE [Concomitant]
     Active Substance: INSULIN GLARGINE
     Dosage: 6 DOSAGE FORMS DAILY; 1 IU, 0-0-0-6, SOLUTION FOR INJECTION / INFUSION
     Route: 058
  6. LOPERAMIDE [Concomitant]
     Active Substance: LOPERAMIDE
     Dosage: 2 MG, REQUIREMENT, CAPSULES
     Route: 048
  7. PANCREAS POWDER [Concomitant]
     Dosage: 75000 IU (INTERNATIONAL UNIT) DAILY; 25000 IU, 1-1-1-0, SUSTAINED-RELEASE CAPSULES,PIG PANCREAS POWD
     Route: 048

REACTIONS (7)
  - General physical health deterioration [Unknown]
  - Pyrexia [Unknown]
  - Decreased appetite [Unknown]
  - Weight decreased [Unknown]
  - Jaundice [Unknown]
  - Diarrhoea [Unknown]
  - Fatigue [Unknown]
